FAERS Safety Report 10564485 (Version 1)
Quarter: 2014Q4

REPORT INFORMATION
  Report Type: Spontaneous
  Country: US (occurrence: US)
  Receive Date: 20141104
  Receipt Date: 20141104
  Transmission Date: 20150529
  Serious: No
  Sender: FDA-Public Use
  Company Number: US-MALLINCKRODT-T201401760

PATIENT
  Age: 59 Year
  Sex: Male

DRUGS (2)
  1. FENTANYL TRANSDERMAL SYSTEM [Suspect]
     Active Substance: FENTANYL
     Indication: PAIN
     Dosage: 100 MCG/HR, 2 PATCHES Q72H
     Route: 062
     Dates: start: 201310, end: 20140331
  2. OXYCODONE [Concomitant]
     Active Substance: OXYCODONE
     Indication: BREAKTHROUGH PAIN
     Dosage: 30 MG, PRN
     Route: 048

REACTIONS (4)
  - Pain [Not Recovered/Not Resolved]
  - Product adhesion issue [Not Recovered/Not Resolved]
  - Incorrect drug administration duration [Unknown]
  - Drug withdrawal syndrome [Not Recovered/Not Resolved]

NARRATIVE: CASE EVENT DATE: 201310
